FAERS Safety Report 6634187-7 (Version None)
Quarter: 2010Q1

REPORT INFORMATION
  Report Type: 
  Country: None (occurrence: None)
  Receive Date: 20100309
  Receipt Date: 20100222
  Transmission Date: 20100710
  Serious: Yes (Other)
  Sender: FDA-Public Use
  Company Number: 2008EU002012

PATIENT
  Age: 80 Year
  Sex: Female

DRUGS (4)
  1. PROTOPIC [Suspect]
     Indication: ECZEMA
     Dosage: 0.1%, PRN, TOPICAL
     Route: 061
     Dates: start: 20070701
  2. FEXOFENADINE HCL [Concomitant]
  3. LIPOBASE (LOCOBASE) [Concomitant]
  4. BALNEUM PLUS (LAUROMACROGOL, GLYCINE MAX SEED OIL) [Concomitant]

REACTIONS (2)
  - HEAD AND NECK CANCER [None]
  - SQUAMOUS CELL CARCINOMA [None]
